FAERS Safety Report 8152407-7 (Version None)
Quarter: 2012Q1

REPORT INFORMATION
  Report Type: 
  Country: None (occurrence: None)
  Receive Date: 20120215
  Receipt Date: 20120215
  Transmission Date: 20120608
  Serious: Yes (Hospitalization)
  Sender: FDA-Public Use
  Company Number: None

PATIENT
  Sex: Female
  Weight: 91 kg

DRUGS (7)
  1. ACYCLOVIR [Concomitant]
  2. VITAMIN D [Concomitant]
  3. TRAMADOL HCL [Concomitant]
  4. FLUDARABINE PHOSPHATE [Suspect]
     Indication: MULTIPLE MYELOMA
     Dosage: 25MG/M2 DAYS 1-3 IV
     Route: 042
     Dates: start: 20120116, end: 20120118
  5. DAPSONE [Concomitant]
  6. PRILOSEC [Concomitant]
  7. METHOXYAMINE [Suspect]
     Indication: MULTIPLE MYELOMA
     Dosage: 15MG/M2 D1 Q28DAYS IV
     Route: 042
     Dates: start: 20120116

REACTIONS (5)
  - FATIGUE [None]
  - CHEST X-RAY ABNORMAL [None]
  - PYREXIA [None]
  - TACHYCARDIA [None]
  - DYSPNOEA [None]
